FAERS Safety Report 16552631 (Version 2)
Quarter: 2019Q3

REPORT INFORMATION
  Report Type: Spontaneous
  Country: US (occurrence: US)
  Receive Date: 20190710
  Receipt Date: 20190711
  Transmission Date: 20191004
  Serious: No
  Sender: FDA-Public Use
  Company Number: US-PFIZER INC-2019282746

PATIENT
  Age: 66 Year
  Sex: Male
  Weight: 64.4 kg

DRUGS (1)
  1. NICOTROL [Suspect]
     Active Substance: NICOTINE
     Indication: SMOKING CESSATION THERAPY
     Dosage: UNK (QUANTITY 40 SPRAYS PER UNIT OF 4, TAKE UP TO A MAX OF 20 SPRAYS PER DAY)

REACTIONS (4)
  - Product use complaint [Unknown]
  - Product use issue [Unknown]
  - Burning sensation [Unknown]
  - Incorrect dose administered [Unknown]
